FAERS Safety Report 8432914-X (Version None)
Quarter: 2012Q2

REPORT INFORMATION
  Report Type: 
  Country: None (occurrence: None)
  Receive Date: 20120323
  Receipt Date: 20110715
  Transmission Date: 20120825
  Serious: Yes (Other)
  Sender: FDA-Public Use
  Company Number: 163-21880-11072094

PATIENT
  Age: 62 Year
  Sex: Male

DRUGS (4)
  1. REVLIMID [Suspect]
     Indication: ACUTE MYELOID LEUKAEMIA
     Dosage: 50 MG, 2 IN 1 D, PO, 20 MG, 2 IN 1 D, PO, 10 MG, 1 IN 1 D, PO, 5 MG, X 28 DAYS, PO
     Route: 048
     Dates: start: 20101201
  2. REVLIMID [Suspect]
     Indication: ACUTE MYELOID LEUKAEMIA
     Dosage: 50 MG, 2 IN 1 D, PO, 20 MG, 2 IN 1 D, PO, 10 MG, 1 IN 1 D, PO, 5 MG, X 28 DAYS, PO
     Route: 048
     Dates: start: 20110601
  3. REVLIMID [Suspect]
     Indication: ACUTE MYELOID LEUKAEMIA
     Dosage: 50 MG, 2 IN 1 D, PO, 20 MG, 2 IN 1 D, PO, 10 MG, 1 IN 1 D, PO, 5 MG, X 28 DAYS, PO
     Route: 048
     Dates: start: 20110401
  4. REVLIMID [Suspect]
     Indication: ACUTE MYELOID LEUKAEMIA
     Dosage: 50 MG, 2 IN 1 D, PO, 20 MG, 2 IN 1 D, PO, 10 MG, 1 IN 1 D, PO, 5 MG, X 28 DAYS, PO
     Route: 048
     Dates: start: 20110301

REACTIONS (1)
  - FULL BLOOD COUNT DECREASED [None]
